FAERS Safety Report 11208609 (Version 1)
Quarter: 2015Q2

REPORT INFORMATION
  Report Type: Report from Study
  Country: US (occurrence: US)
  Receive Date: 20150622
  Receipt Date: 20150622
  Transmission Date: 20150821
  Serious: No
  Sender: FDA-Public Use
  Company Number: US-ABBVIE-15P-163-1385618-00

PATIENT
  Sex: Male

DRUGS (1)
  1. VIEKIRA PAK [Suspect]
     Active Substance: DASABUVIR\OMBITASVIR\PARITAPREVIR\RITONAVIR
     Indication: HEPATITIS C
     Dosage: TWO PINK TABS WITH ONE BEIGE TAB Q A.M AND ONE BEIGE TAB Q P.M
     Route: 048
     Dates: start: 201503

REACTIONS (3)
  - Mood altered [Unknown]
  - Abdominal pain [Unknown]
  - Confusional state [Unknown]

NARRATIVE: CASE EVENT DATE: 20150503
